FAERS Safety Report 14075568 (Version 1)
Quarter: 2017Q4

REPORT INFORMATION
  Report Type: Spontaneous
  Country: US (occurrence: US)
  Receive Date: 20171011
  Receipt Date: 20171011
  Transmission Date: 20180321
  Serious: No
  Sender: FDA-Public Use
  Company Number: US-GLAXOSMITHKLINE-US2017GSK155542

PATIENT
  Sex: Female

DRUGS (1)
  1. VENTOLIN HFA [Suspect]
     Active Substance: ALBUTEROL SULFATE
     Indication: COUGH
     Dosage: 2 PUFF(S), QID
     Route: 055

REACTIONS (6)
  - Inappropriate schedule of drug administration [Unknown]
  - Overdose [Unknown]
  - Product use in unapproved indication [Unknown]
  - Wrong technique in device usage process [Unknown]
  - Underdose [Unknown]
  - Wrong technique in product usage process [Unknown]
